FAERS Safety Report 8121921-2 (Version None)
Quarter: 2012Q1

REPORT INFORMATION
  Report Type: 
  Country: None (occurrence: None)
  Receive Date: 20120208
  Receipt Date: 20120202
  Transmission Date: 20120608
  Serious: Yes (Other)
  Sender: FDA-Public Use
  Company Number: US-PFIZER INC-2012030107

PATIENT
  Age: 42 Year

DRUGS (1)
  1. LYRICA [Suspect]
     Dosage: UNK

REACTIONS (8)
  - COGNITIVE DISORDER [None]
  - CONFUSIONAL STATE [None]
  - INFLUENZA [None]
  - MAJOR DEPRESSION [None]
  - PAIN [None]
  - GAIT DISTURBANCE [None]
  - STRESS [None]
  - MALAISE [None]
